FAERS Safety Report 15311626 (Version 1)
Quarter: 2018Q4

REPORT INFORMATION
  Report Type: Spontaneous
  Country: US (occurrence: US)
  Receive Date: 20180823
  Receipt Date: 20180823
  Transmission Date: 20190204
  Serious: No
  Sender: FDA-Public Use
  Company Number: US-COLLEGIUM PHARMACEUTICAL, INC.-2018CGM00255

PATIENT
  Age: 56 Year
  Sex: Male
  Weight: 81.63 kg

DRUGS (3)
  1. OXYCODONE (AUROBINDO) [Suspect]
     Active Substance: OXYCODONE
     Indication: BREAKTHROUGH PAIN
     Dosage: 5 MG, 4X/DAY AS NEEDED
     Route: 048
     Dates: start: 20180705
  2. XTAMPZA ER [Suspect]
     Active Substance: OXYCODONE
     Indication: PAIN
     Dosage: 27 MG, 2X/DAY
     Route: 048
     Dates: start: 20180705
  3. LISINOPRIL (SOLCO) [Concomitant]
     Dosage: 40 MG, 1X/DAY

REACTIONS (1)
  - Drug effect incomplete [Not Recovered/Not Resolved]

NARRATIVE: CASE EVENT DATE: 20180705
